FAERS Safety Report 4614847-X (Version None)
Quarter: 2005Q1

REPORT INFORMATION
  Report Type: 
  Country: None (occurrence: None)
  Receive Date: 20050318
  Receipt Date: 20050318
  Transmission Date: 20050727
  Serious: Yes (Life-Threatening, Hospitalization)
  Sender: FDA-Public Use
  Company Number: None

PATIENT
  Age: 48 Year
  Sex: Male

DRUGS (12)
  1. IMIPENEM/CILASTATIN [Suspect]
     Indication: WOUND INFECTION
     Dosage: 1GM  IV  QID
     Route: 042
     Dates: start: 20041228, end: 20050120
  2. LISINOPRIL [Concomitant]
  3. METFORMIN [Concomitant]
  4. TRAZODONE HCL [Concomitant]
  5. RANITIDINE [Concomitant]
  6. PHENERGAN [Concomitant]
  7. HUMULIN 70/30 [Concomitant]
  8. GEMFIBROZIL [Concomitant]
  9. ASPIRIN [Concomitant]
  10. PERCOCET [Concomitant]
  11. VANCOMYCIN [Concomitant]
  12. PRIMAXIN [Concomitant]

REACTIONS (4)
  - CHILLS [None]
  - NEUTROPENIA [None]
  - PYREXIA [None]
  - WHITE BLOOD CELL COUNT DECREASED [None]
